FAERS Safety Report 4335423-2 (Version None)
Quarter: 2004Q2

REPORT INFORMATION
  Report Type: 
  Country: None (occurrence: None)
  Receive Date: 20040408
  Receipt Date: 20040408
  Transmission Date: 20050107
  Serious: Yes (Hospitalization, Disabling)
  Sender: FDA-Public Use
  Company Number: None

PATIENT
  Age: 82 Year
  Sex: Male

DRUGS (7)
  1. ACTIVASE [Suspect]
     Indication: EMBOLIC STROKE
     Dosage: SEE IMAGE
     Route: 042
  2. DOXYCYCLINE [Concomitant]
  3. ASPIRIN [Concomitant]
  4. B12 [Concomitant]
  5. ALPHAGAN [Concomitant]
  6. COSOPT [Concomitant]
  7. MULTI-VITAMIN [Concomitant]

REACTIONS (1)
  - HAEMORRHAGIC CEREBRAL INFARCTION [None]
